FAERS Safety Report 5421033-2 (Version None)
Quarter: 2007Q3

REPORT INFORMATION
  Report Type: 
  Country: None (occurrence: None)
  Receive Date: 20070821
  Receipt Date: 20070816
  Transmission Date: 20080115
  Serious: Yes (Hospitalization)
  Sender: FDA-Public Use
  Company Number: A0666900A

PATIENT
  Age: 67 Year
  Sex: Female

DRUGS (3)
  1. ARIXTRA [Suspect]
     Dosage: 2.5MG PER DAY
     Route: 058
     Dates: start: 20070521, end: 20070603
  2. TYLOX [Concomitant]
  3. TED STOCKINGS [Concomitant]
     Dates: start: 20070501

REACTIONS (2)
  - DRUG INEFFECTIVE [None]
  - THROMBOSIS [None]
